FAERS Safety Report 15059324 (Version 1)
Quarter: 2018Q2

REPORT INFORMATION
  Report Type: Spontaneous
  Country: US (occurrence: US)
  Receive Date: 20180605
  Receipt Date: 20180605
  Transmission Date: 20180711
  Serious: Yes (Other)
  Sender: FDA-Public Use
  Company Number: None

PATIENT
  Age: 63 Year
  Sex: Female
  Weight: 60.75 kg

DRUGS (8)
  1. TOPAMATE [Concomitant]
     Active Substance: TOPIRAMATE
  2. EFFEXOR [Concomitant]
     Active Substance: VENLAFAXINE HYDROCHLORIDE
  3. LUVASA [Concomitant]
  4. XARELTO [Concomitant]
     Active Substance: RIVAROXABAN
  5. BOTOX [Suspect]
     Active Substance: ONABOTULINUMTOXINA
     Indication: MIGRAINE
     Dosage: ?          OTHER FREQUENCY:EVERY 3 MONTHS OR;?
     Route: 058
     Dates: start: 20180501, end: 20180501
  6. FENEFIBRATE [Concomitant]
  7. MS CONTIN [Concomitant]
     Active Substance: MORPHINE SULFATE
  8. OCUVITE [Concomitant]
     Active Substance: VITAMINS

REACTIONS (4)
  - Dizziness [None]
  - Trismus [None]
  - Lethargy [None]
  - Pain in jaw [None]

NARRATIVE: CASE EVENT DATE: 20180521
